FAERS Safety Report 4360451-0 (Version None)
Quarter: 2004Q2

REPORT INFORMATION
  Report Type: 
  Country: None (occurrence: None)
  Receive Date: 20040514
  Receipt Date: 20040505
  Transmission Date: 20050107
  Serious: Yes (Disabling)
  Sender: FDA-Public Use
  Company Number: 2004-115789-NL

PATIENT
  Age: 69 Year
  Sex: Female
  Weight: 90.9 kg

DRUGS (5)
  1. REMERON SOLTAB [Suspect]
     Indication: DEPRESSION
     Dosage: 60 MG QD ORAL
     Route: 048
     Dates: start: 20031201
  2. REMERON SOLTAB [Suspect]
     Indication: DEPRESSION
     Dosage: 90 MG QD ORAL
     Route: 048
     Dates: start: 20040401
  3. PROZAC [Suspect]
     Indication: DEPRESSION
  4. PRILOSEC [Concomitant]
  5. ATIVAN [Concomitant]

REACTIONS (5)
  - BRUXISM [None]
  - CONDITION AGGRAVATED [None]
  - DRUG INTERACTION [None]
  - TARDIVE DYSKINESIA [None]
  - TRISMUS [None]
